FAERS Safety Report 4353478-6 (Version None)
Quarter: 2004Q2

REPORT INFORMATION
  Report Type: 
  Country: None (occurrence: None)
  Receive Date: 20040505
  Receipt Date: 20040505
  Transmission Date: 20050107
  Serious: Yes (Hospitalization)
  Sender: FDA-Public Use
  Company Number: None

PATIENT
  Age: 67 Year
  Sex: Male
  Weight: 104.8 kg

DRUGS (9)
  1. POTASSIUM CHLORIDE 10MEQ [Suspect]
     Indication: MINERAL SUPPLEMENTATION
     Dosage: 560 MEQ , 140 MEQ Q ,ORAL
     Route: 048
  2. GLIPIZIDE [Concomitant]
  3. ISOSORBIDE DINITRATE [Concomitant]
  4. SPIRONOLACTONE [Concomitant]
  5. INSULIN NOVOLIN 70/30 (NPH/REG) [Concomitant]
  6. METOLAZONE [Concomitant]
  7. FUROSEMIDE [Concomitant]
  8. GLIPIZIDE [Concomitant]
  9. LANOXIN [Concomitant]

REACTIONS (1)
  - INTESTINAL OBSTRUCTION [None]
